FAERS Safety Report 12445311 (Version 2)
Quarter: 2016Q2

REPORT INFORMATION
  Report Type: Spontaneous
  Country: GB (occurrence: GB)
  Receive Date: 20160607
  Receipt Date: 20160615
  Transmission Date: 20160815
  Serious: Yes (Death, Other)
  Sender: FDA-Public Use
  Company Number: GB-009507513-1504GBR013291

PATIENT
  Age: 67 Year
  Sex: Female

DRUGS (5)
  1. FUSIDATE SODIUM [Suspect]
     Active Substance: FUSIDATE SODIUM
     Indication: PRODUCT USED FOR UNKNOWN INDICATION
     Dosage: UNK UNK, UNK
     Route: 065
  2. CUBICIN [Suspect]
     Active Substance: DAPTOMYCIN
     Indication: STAPHYLOCOCCAL INFECTION
     Dosage: 6 MG/KG, QOD
     Route: 042
     Dates: start: 20130222
  3. LINEZOLID. [Suspect]
     Active Substance: LINEZOLID
     Indication: PRODUCT USED FOR UNKNOWN INDICATION
     Dosage: UNK
     Route: 065
     Dates: start: 20130222, end: 20130402
  4. CUBICIN [Suspect]
     Active Substance: DAPTOMYCIN
     Indication: ENDOCARDITIS
     Dosage: UNK
     Route: 042
     Dates: start: 20130419, end: 20130429
  5. MEROPENEM. [Suspect]
     Active Substance: MEROPENEM
     Indication: PRODUCT USED FOR UNKNOWN INDICATION
     Dosage: UNK UNK, UNK
     Route: 042
     Dates: start: 20130419, end: 20130429

REACTIONS (7)
  - Splenic embolism [Fatal]
  - Pulmonary mass [Fatal]
  - Neurotoxicity [Fatal]
  - Thrombocytopenia [Fatal]
  - Anaemia [Recovered/Resolved]
  - Somnolence [Fatal]
  - Cardiac valve vegetation [Fatal]

NARRATIVE: CASE EVENT DATE: 2013
